FAERS Safety Report 7887223 (Version 3)
Quarter: 2012Q4

REPORT INFORMATION
  Report Type: 
  Country: DE (occurrence: DE)
  Receive Date: 20110405
  Receipt Date: 20121029
  Transmission Date: 20130627
  Serious: Yes (Death, Hospitalization, Other)
  Sender: FDA-Public Use
  Company Number: DE-RANBAXY-2011RR-43233

PATIENT
  Age: 74 Year
  Sex: Female
  Weight: 54 kg

DRUGS (9)
  1. SIMVASTATIN [Suspect]
     Indication: HYPERLIPIDAEMIA
     Dosage: 40 mg, qd
     Route: 048
     Dates: end: 20110223
  2. PREDNISOLONE [Suspect]
     Indication: TEMPORAL ARTERITIS
     Dosage: 25 mg, qd
     Route: 048
     Dates: start: 201010, end: 20110223
  3. ACLASTA [Concomitant]
     Indication: OSTEOPOROSIS
     Dosage: 5 mg, qd
     Route: 042
     Dates: start: 201006
  4. ASS [Concomitant]
     Indication: CARDIOVASCULAR EVENT PROPHYLAXIS
     Dosage: 100 mg, qd
     Route: 048
  5. PANTOZOL [Concomitant]
     Indication: PROPHYLAXIS AGAINST GASTROINTESTINAL ULCER
     Dosage: 40 mg, qd
     Route: 048
  6. ENALAPRIL [Concomitant]
     Indication: HYPERTENSION
     Dosage: 10 mg, bid
     Route: 048
  7. VERAPAMIL [Concomitant]
     Indication: HYPERTENSION
     Dosage: UNK
     Route: 048
  8. CALCILAC KT [Concomitant]
     Indication: OSTEOPOROSIS
     Dosage: 1 DF, bid
     Route: 048
  9. PENTALONG [Concomitant]
     Indication: ANGINA PECTORIS
     Dosage: 80 mg, qd
     Route: 048

REACTIONS (2)
  - Myopathy [Not Recovered/Not Resolved]
  - Cushing^s syndrome [Unknown]
